FAERS Safety Report 22161408 (Version 7)
Quarter: 2024Q4

REPORT INFORMATION
  Report Type: Report from Study
  Country: US (occurrence: US)
  Receive Date: 20230331
  Receipt Date: 20241106
  Transmission Date: 20250114
  Serious: Yes (Other)
  Sender: UCB
  Company Number: US-UCBSA-2023012910

PATIENT
  Age: 89 Year
  Sex: Female
  Weight: 61 kg

DRUGS (3)
  1. ROTIGOTINE [Suspect]
     Active Substance: ROTIGOTINE
     Indication: Parkinson^s disease
     Dosage: 8 MILLIGRAM, ONCE DAILY (QD)
     Route: 062
  2. ROTIGOTINE [Suspect]
     Active Substance: ROTIGOTINE
     Dosage: 4 MILLIGRAM, 2X/DAY (BID)
     Route: 062
     Dates: start: 2017
  3. ROTIGOTINE [Suspect]
     Active Substance: ROTIGOTINE
     Dosage: 8 MILLIGRAM, ONCE DAILY (QD)
     Route: 062

REACTIONS (17)
  - Chronic obstructive pulmonary disease [Not Recovered/Not Resolved]
  - Glaucoma [Unknown]
  - Crohn^s disease [Unknown]
  - Rheumatoid arthritis [Unknown]
  - Parkinson^s disease [Not Recovered/Not Resolved]
  - Jaw fracture [Unknown]
  - Spinal fracture [Not Recovered/Not Resolved]
  - Oxygen saturation abnormal [Unknown]
  - Application site erythema [Unknown]
  - Fall [Not Recovered/Not Resolved]
  - Rib fracture [Unknown]
  - Upper limb fracture [Not Recovered/Not Resolved]
  - Spinal column injury [Not Recovered/Not Resolved]
  - Head injury [Not Recovered/Not Resolved]
  - Face injury [Not Recovered/Not Resolved]
  - Eye injury [Not Recovered/Not Resolved]
  - Inappropriate schedule of product administration [Unknown]

NARRATIVE: CASE EVENT DATE: 20231227
